FAERS Safety Report 10299831 (Version 1)
Quarter: 2014Q3

REPORT INFORMATION
  Report Type: Spontaneous
  Country: US (occurrence: US)
  Receive Date: 20140711
  Receipt Date: 20140711
  Transmission Date: 20150326
  Serious: No
  Sender: FDA-Public Use
  Company Number: US-GILEAD-2013-0085056

PATIENT
  Sex: Male

DRUGS (8)
  1. WARFARIN [Concomitant]
     Active Substance: WARFARIN
  2. LETAIRIS [Suspect]
     Active Substance: AMBRISENTAN
     Indication: PULMONARY ARTERIAL HYPERTENSION
     Dosage: 5 MG, QD
     Route: 048
     Dates: start: 20130329
  3. XANAX [Concomitant]
     Active Substance: ALPRAZOLAM
  4. SIMVASTATIN. [Concomitant]
     Active Substance: SIMVASTATIN
  5. LORTAB [Concomitant]
     Active Substance: ACETAMINOPHEN\HYDROCODONE BITARTRATE
  6. ADCIRCA [Concomitant]
     Active Substance: TADALAFIL
     Indication: PULMONARY ARTERIAL HYPERTENSION
     Dates: start: 20130621
  7. FOSAMAX [Concomitant]
     Active Substance: ALENDRONATE SODIUM
  8. NEXIUM [Concomitant]
     Active Substance: ESOMEPRAZOLE MAGNESIUM

REACTIONS (1)
  - Peripheral swelling [Unknown]
